FAERS Safety Report 23338350 (Version 5)
Quarter: 2024Q1

REPORT INFORMATION
  Report Type: Report from Study
  Country: US (occurrence: US)
  Receive Date: 20231226
  Receipt Date: 20240124
  Transmission Date: 20240410
  Serious: Yes (Hospitalization)
  Sender: FDA-Public Use
  Company Number: US-ALNYLAM PHARMACEUTICALS, INC.-ALN-2023-006886

PATIENT

DRUGS (1)
  1. AMVUTTRA [Suspect]
     Active Substance: VUTRISIRAN
     Indication: Hereditary neuropathic amyloidosis
     Dosage: 25 MILLIGRAM, Q3M
     Route: 058
     Dates: start: 20230324

REACTIONS (7)
  - Influenza [Unknown]
  - Therapy interrupted [Unknown]
  - Nausea [Unknown]
  - Dizziness [Unknown]
  - Malaise [Unknown]
  - Asthenia [Unknown]
  - Feeling abnormal [Unknown]

NARRATIVE: CASE EVENT DATE: 20231201
